FAERS Safety Report 9015542 (Version 1)
Quarter: 2013Q1

REPORT INFORMATION
  Report Type: Spontaneous
  Country: GB (occurrence: None)
  Receive Date: 20130103
  Receipt Date: 20130103
  Transmission Date: 20140127
  Serious: Yes (Disabling, Other)
  Sender: FDA-Public Use
  Company Number: 2012P1068332

PATIENT
  Age: 85 Year
  Sex: Female

DRUGS (1)
  1. GENTAMICIN [Suspect]
     Indication: CATARACT OPERATION
     Route: 057

REACTIONS (1)
  - Toxic anterior segment syndrome [None]
